FAERS Safety Report 10082564 (Version 2)
Quarter: 2014Q2

REPORT INFORMATION
  Report Type: Spontaneous
  Country: US (occurrence: US)
  Receive Date: 20140416
  Receipt Date: 20140416
  Transmission Date: 20141212
  Serious: No
  Sender: FDA-Public Use
  Company Number: US-ORAPHARMA-QUINORA-2014-119

PATIENT
  Sex: 0

DRUGS (3)
  1. ARESTIN [Suspect]
     Indication: PERIODONTAL DISEASE
     Dosage: 1 CARTRIDGE, ONE TIME DOSE
     Route: 050
     Dates: start: 20140114, end: 20140114
  2. AMOXICILLIN [Suspect]
     Indication: PERIODONTAL DISEASE
     Dosage: 500 MG, QD
     Route: 048
     Dates: start: 20140114, end: 20140115
  3. AMOXICILLIN [Suspect]
     Indication: INFECTION

REACTIONS (2)
  - Dizziness [Recovered/Resolved]
  - Nausea [Recovered/Resolved]
